FAERS Safety Report 7790329-1 (Version None)
Quarter: 2011Q3

REPORT INFORMATION
  Report Type: 
  Country: None (occurrence: None)
  Receive Date: 20110930
  Receipt Date: 20110920
  Transmission Date: 20111222
  Serious: Yes (Hospitalization)
  Sender: FDA-Public Use
  Company Number: JP-ABBOTT-09P-087-0608542-00

PATIENT
  Sex: Female
  Weight: 52.4 kg

DRUGS (6)
  1. FERROUS CITRATE [Concomitant]
     Indication: ANAEMIA
     Route: 048
     Dates: start: 20080822
  2. HUMIRA [Suspect]
     Dosage: RESCUE THERAPY
     Route: 058
     Dates: start: 20090915, end: 20091013
  3. PREDNISOLONE [Concomitant]
     Indication: COLITIS ULCERATIVE
     Route: 048
     Dates: start: 20080215
  4. HUMIRA [Suspect]
     Indication: COLITIS ULCERATIVE
     Dosage: WEEK 0
     Route: 058
     Dates: start: 20090707, end: 20090707
  5. HUMIRA [Suspect]
     Dosage: WEEK 1
     Route: 058
  6. HUMIRA [Suspect]
     Dosage: STARTING WEEK 4
     Route: 058
     Dates: end: 20090901

REACTIONS (1)
  - TUBULOINTERSTITIAL NEPHRITIS [None]
